FAERS Safety Report 5925228-0 (Version None)
Quarter: 2008Q4

REPORT INFORMATION
  Report Type: 
  Country: None (occurrence: None)
  Receive Date: 20081020
  Receipt Date: 20081020
  Transmission Date: 20090506
  Serious: Yes (Hospitalization, Other)
  Sender: FDA-Public Use
  Company Number: None

PATIENT
  Age: 33 Year
  Sex: Female
  Weight: 77.1115 kg

DRUGS (1)
  1. AVELOX [Suspect]
     Indication: SINUSITIS
     Dosage: 400MG DAILY PO
     Route: 048
     Dates: start: 20081017, end: 20081017

REACTIONS (10)
  - ANXIETY [None]
  - COMMUNICATION DISORDER [None]
  - DYSTONIA [None]
  - HYPOAESTHESIA [None]
  - SPEECH DISORDER [None]
  - THINKING ABNORMAL [None]
  - TREMOR [None]
  - URTICARIA [None]
  - VERTIGO [None]
  - VISUAL IMPAIRMENT [None]
